FAERS Safety Report 12100962 (Version 1)
Quarter: 2016Q1

REPORT INFORMATION
  Report Type: Spontaneous
  Country: US (occurrence: US)
  Receive Date: 20160222
  Receipt Date: 20160222
  Transmission Date: 20160526
  Serious: No
  Sender: FDA-Public Use
  Company Number: US-CELGENEUS-USA-2016023582

PATIENT
  Age: 44 Year
  Sex: Female
  Weight: 98.52 kg

DRUGS (2)
  1. OTEZLA [Suspect]
     Active Substance: APREMILAST
     Indication: PSORIATIC ARTHROPATHY
     Route: 048
     Dates: start: 20160126, end: 20160210
  2. OTEZLA [Suspect]
     Active Substance: APREMILAST
     Indication: PSORIASIS
     Route: 048
     Dates: start: 2015, end: 2015

REACTIONS (6)
  - Headache [Recovered/Resolved]
  - Back pain [Recovered/Resolved]
  - Agitation [Recovered/Resolved]
  - Neuropathy peripheral [Recovered/Resolved]
  - Bladder pain [Recovered/Resolved]
  - Diarrhoea [Recovered/Resolved]

NARRATIVE: CASE EVENT DATE: 201512
